FAERS Safety Report 8135947 (Version 2)
Quarter: 2013Q2

REPORT INFORMATION
  Report Type: Spontaneous
  Country: US (occurrence: None)
  Receive Date: 20110817
  Receipt Date: 20120817
  Transmission Date: 20140414
  Serious: Yes (Other)
  Sender: FDA-Public Use
  Company Number: 201110269

PATIENT
  Age: 69 Year
  Sex: Male

DRUGS (4)
  1. LIORESAL [Suspect]
     Indication: MUSCLE RELAXANT THERAPY
     Dosage: UNK MCG, DAILY, INTRATHECAL
     Route: 037
  2. HYDROMORPHONE HYDROCHLORIDE [Concomitant]
  3. FENTANYL [Concomitant]
  4. BUPIVICAINE [Concomitant]

REACTIONS (2)
  - SOMNOLENCE [None]
  - Somnolence [None]
